FAERS Safety Report 8888164 (Version 2)
Quarter: 2012Q4

REPORT INFORMATION
  Report Type: Report from Study
  Country: JP (occurrence: JP)
  Receive Date: 20121106
  Receipt Date: 20121121
  Transmission Date: 20130627
  Serious: Yes (Other)
  Sender: FDA-Public Use
  Company Number: JP-BAYER-2012-114558

PATIENT
  Age: 39 Year
  Sex: Male

DRUGS (6)
  1. ACARBOSE [Suspect]
     Indication: DIABETES MELLITUS
     Dosage: 100 mg, TID
     Route: 048
     Dates: start: 20111014
  2. NOVORAPID [Suspect]
     Indication: DIABETES MELLITUS
     Dosage: Daily dose 32 u
  3. LEVEMIR [Suspect]
     Indication: DIABETES MELLITUS
     Dosage: 22 u, QD
  4. MET [Concomitant]
     Indication: DIABETES MELLITUS
     Dosage: 1000 mg, QD
     Route: 048
  5. VOGLIBOSE [Concomitant]
     Dosage: UNK
     Route: 048
  6. INSULIN [Concomitant]
     Dosage: UNK
     Dates: start: 20120227

REACTIONS (7)
  - Hypoglycaemic seizure [Recovered/Resolved]
  - Hypoglycaemic seizure [Recovered/Resolved]
  - Enterocolitis [Recovered/Resolved]
  - Hypoglycaemia [Recovered/Resolved]
  - Alanine aminotransferase increased [Recovered/Resolved]
  - Nasopharyngitis [Recovered/Resolved]
  - Nasopharyngitis [Recovered/Resolved]
